FAERS Safety Report 6729414-1 (Version None)
Quarter: 2010Q2

REPORT INFORMATION
  Report Type: 
  Country: None (occurrence: None)
  Receive Date: 20100518
  Receipt Date: 20100512
  Transmission Date: 20101027
  Serious: Yes (Hospitalization)
  Sender: FDA-Public Use
  Company Number: US-BIOGENIDEC-2010BI015511

PATIENT
  Age: 36 Year
  Sex: Male
  Weight: 81 kg

DRUGS (7)
  1. TYSABRI [Suspect]
     Indication: MULTIPLE SCLEROSIS
     Route: 042
     Dates: start: 20080709, end: 20100121
  2. DIVALPROEX SODIUM [Concomitant]
     Indication: AFFECTIVE DISORDER
     Route: 048
  3. DOCUSATE [Concomitant]
     Indication: CONSTIPATION PROPHYLAXIS
     Route: 048
  4. ESCITALOPRAM [Concomitant]
     Indication: DEPRESSION
     Route: 048
  5. ESOMEPRAZOLE [Concomitant]
     Route: 048
  6. VENLAFAXINE [Concomitant]
     Indication: DEPRESSION
     Route: 048
  7. BACLOFEN [Concomitant]

REACTIONS (2)
  - ABDOMINAL WALL ABSCESS [None]
  - CELLULITIS [None]
